FAERS Safety Report 12130356 (Version 1)
Quarter: 2016Q1

REPORT INFORMATION
  Report Type: Spontaneous
  Country: US (occurrence: US)
  Receive Date: 20160301
  Receipt Date: 20160301
  Transmission Date: 20160526
  Serious: Yes (Hospitalization)
  Sender: FDA-Public Use
  Company Number: US-TEVA-639293ACC

PATIENT
  Age: 32 Year
  Sex: Female
  Weight: 106 kg

DRUGS (3)
  1. PARAGARD T 380A [Suspect]
     Active Substance: COPPER
     Indication: CONTRACEPTION
     Dates: start: 20151230
  2. COUMADIN [Concomitant]
     Active Substance: WARFARIN SODIUM
     Indication: SUPERIOR SAGITTAL SINUS THROMBOSIS
  3. HEPARIN [Concomitant]
     Active Substance: HEPARIN SODIUM
     Indication: SUPERIOR SAGITTAL SINUS THROMBOSIS

REACTIONS (5)
  - Large intestine perforation [Recovered/Resolved]
  - Device dislocation [Unknown]
  - Appendicitis [Unknown]
  - Nausea [Unknown]
  - Pyrexia [Unknown]

NARRATIVE: CASE EVENT DATE: 20160210
